FAERS Safety Report 21755208 (Version 1)
Quarter: 2022Q4

REPORT INFORMATION
  Report Type: Spontaneous
  Country: US (occurrence: None)
  Receive Date: 20221220
  Receipt Date: 20221220
  Transmission Date: 20230113
  Serious: Yes (Hospitalization)
  Sender: FDA-Public Use
  Company Number: None

PATIENT
  Age: 63 Year
  Sex: Male
  Weight: 132.75 kg

DRUGS (2)
  1. LISINOPRIL [Suspect]
     Active Substance: LISINOPRIL
     Indication: Hypertension
     Dates: start: 20221116, end: 20221217
  2. METOPROLOL [Concomitant]

REACTIONS (3)
  - Blood pressure increased [None]
  - Visual impairment [None]
  - Product substitution issue [None]

NARRATIVE: CASE EVENT DATE: 20221217
